FAERS Safety Report 15877300 (Version 1)
Quarter: 2019Q1

REPORT INFORMATION
  Report Type: Spontaneous
  Country: US (occurrence: US)
  Receive Date: 20190128
  Receipt Date: 20190128
  Transmission Date: 20190417
  Serious: Yes (Other)
  Sender: FDA-Public Use
  Company Number: US-SA-2018SA062346

PATIENT
  Age: 60 Year
  Sex: Female
  Weight: 71 kg

DRUGS (4)
  1. TAXOTERE [Suspect]
     Active Substance: DOCETAXEL
     Dosage: 75 MG/M2, Q3W
     Route: 042
     Dates: start: 20140401, end: 20140401
  2. TAXOTERE [Suspect]
     Active Substance: DOCETAXEL
     Indication: BREAST CANCER FEMALE
     Dosage: 75 MG/M2, Q3W
     Route: 042
     Dates: start: 20130823, end: 20130823
  3. NEOSAR [Concomitant]
     Active Substance: CYCLOPHOSPHAMIDE
  4. TAMOXIFEN [Concomitant]
     Active Substance: TAMOXIFEN
     Dosage: UNK
     Dates: start: 20141014

REACTIONS (1)
  - Alopecia [Not Recovered/Not Resolved]

NARRATIVE: CASE EVENT DATE: 201410
